FAERS Safety Report 5034494-8 (Version None)
Quarter: 2006Q2

REPORT INFORMATION
  Report Type: 
  Country: None (occurrence: None)
  Receive Date: 20060623
  Receipt Date: 20060623
  Transmission Date: 20061013
  Serious: Yes (Other)
  Sender: FDA-Public Use
  Company Number: None

PATIENT
  Age: 29 Year
  Sex: Female

DRUGS (3)
  1. DURAGESIC-25 [Suspect]
     Indication: LESION OF ULNAR NERVE
     Dosage: 25 MCG ONE PATCH Q 72 H [USES PATCHES EVERY 3 DAYS]
  2. DURAGESIC-25 [Suspect]
     Indication: NEUROPATHY
     Dosage: 25 MCG ONE PATCH Q 72 H [USES PATCHES EVERY 3 DAYS]
  3. OCYCODONE/APAP [Concomitant]

REACTIONS (2)
  - APPLICATION SITE DERMATITIS [None]
  - PHARMACEUTICAL PRODUCT COMPLAINT [None]
